FAERS Safety Report 6667752-1 (Version None)
Quarter: 2010Q2

REPORT INFORMATION
  Report Type: 
  Country: None (occurrence: None)
  Receive Date: 20100405
  Receipt Date: 20100325
  Transmission Date: 20101027
  Serious: Yes (Other)
  Sender: FDA-Public Use
  Company Number: US-PFIZER INC-2010039334

PATIENT
  Sex: Male

DRUGS (9)
  1. LIPITOR [Suspect]
     Indication: BLOOD CHOLESTEROL INCREASED
     Dosage: 20 MG, 1X/DAY
     Route: 048
     Dates: end: 20100201
  2. ALLOPURINOL [Concomitant]
     Dosage: UNK
  3. VALSARTAN [Concomitant]
     Dosage: UNK
  4. NIFEDIPINE [Concomitant]
     Dosage: UNK
  5. CARVEDILOL [Concomitant]
     Dosage: UNK
  6. ACCUPRIL [Concomitant]
     Dosage: UNK
  7. ACETYLSALICYLIC ACID [Concomitant]
     Dosage: 81 MG, 1X/DAY
  8. POTASSIUM [Concomitant]
     Dosage: UNK
  9. MAGNESIUM [Concomitant]
     Dosage: UNK

REACTIONS (6)
  - ARTHRALGIA [None]
  - ARTHROPATHY [None]
  - BACK PAIN [None]
  - GROIN PAIN [None]
  - PAIN [None]
  - PAIN IN EXTREMITY [None]
